FAERS Safety Report 5811483-4 (Version None)
Quarter: 2008Q3

REPORT INFORMATION
  Report Type: 
  Country: None (occurrence: None)
  Receive Date: 20080716
  Receipt Date: 20080709
  Transmission Date: 20090109
  Serious: Yes (Hospitalization)
  Sender: FDA-Public Use
  Company Number: JP-AVENTIS-200816082GDDC

PATIENT
  Age: 77 Year
  Sex: Female

DRUGS (6)
  1. CRAVIT [Suspect]
     Indication: ENTERITIS INFECTIOUS
     Route: 048
     Dates: start: 20080529, end: 20080601
  2. AMARYL [Suspect]
     Indication: DIABETES MELLITUS
     Route: 048
     Dates: start: 20050101
  3. WARFARIN SODIUM [Concomitant]
     Dosage: DOSE: UNK
  4. ALBUMIN TANNATE [Concomitant]
     Dosage: DOSE: UNK
  5. BASEN [Concomitant]
     Dosage: DOSE: UNK
  6. MIYA-BM [Concomitant]
     Dosage: DOSE: UNK

REACTIONS (1)
  - PLATELET COUNT DECREASED [None]
